FAERS Safety Report 4308408-X (Version None)
Quarter: 2004Q1

REPORT INFORMATION
  Report Type: 
  Country: None (occurrence: None)
  Receive Date: 20040301
  Receipt Date: 20040219
  Transmission Date: 20041129
  Serious: Yes (Death)
  Sender: FDA-Public Use
  Company Number: WAES 0402NLD00020

PATIENT
  Age: 54 Year
  Sex: Male
  Weight: 77 kg

DRUGS (2)
  1. ATORVASTATIN CALCIUM [Concomitant]
     Indication: TYPE IIA HYPERLIPIDAEMIA
     Dates: start: 19980101
  2. ZETIA [Suspect]
     Indication: TYPE IIA HYPERLIPIDAEMIA
     Route: 048
     Dates: start: 20030715

REACTIONS (1)
  - SUDDEN DEATH [None]
